FAERS Safety Report 24357368 (Version 3)
Quarter: 2024Q4

REPORT INFORMATION
  Report Type: Spontaneous
  Country: US (occurrence: US)
  Receive Date: 20240924
  Receipt Date: 20241211
  Transmission Date: 20250115
  Serious: Yes (Other)
  Sender: SANOFI AVENTIS
  Company Number: US-SA-2024SA275298

PATIENT
  Age: 60 Year
  Sex: Male
  Weight: 102.27 kg

DRUGS (1)
  1. DUPIXENT [Suspect]
     Active Substance: DUPILUMAB
     Indication: Asthma
     Dosage: 300 MG, QOW
     Route: 058
     Dates: start: 20240821, end: 20240919

REACTIONS (6)
  - Deafness unilateral [Recovered/Resolved]
  - Middle ear effusion [Unknown]
  - Ear congestion [Recovered/Resolved]
  - Sleep disorder due to a general medical condition [Unknown]
  - Back pain [Unknown]
  - Arthralgia [Unknown]

NARRATIVE: CASE EVENT DATE: 20240101
